FAERS Safety Report 16808906 (Version 2)
Quarter: 2019Q3

REPORT INFORMATION
  Report Type: Spontaneous
  Country: US (occurrence: US)
  Receive Date: 20190916
  Receipt Date: 20190919
  Transmission Date: 20191005
  Serious: Yes (Hospitalization, Other)
  Sender: FDA-Public Use
  Company Number: US-SA-2019SA256736

PATIENT
  Age: 80 Year
  Sex: Male

DRUGS (3)
  1. ATORVASTATIN [Concomitant]
     Active Substance: ATORVASTATIN
     Dosage: UNK UNK, UNK
  2. PRALUENT [Suspect]
     Active Substance: ALIROCUMAB
     Indication: BLOOD CHOLESTEROL INCREASED
     Dosage: 75 MG, QOW
     Dates: start: 2018
  3. REPATHA [Concomitant]
     Active Substance: EVOLOCUMAB
     Dosage: UNK, UNK

REACTIONS (5)
  - Product dose omission [Unknown]
  - Lymphoma [Unknown]
  - Malaise [Unknown]
  - Device malfunction [Unknown]
  - Hypoacusis [Unknown]
